FAERS Safety Report 13129285 (Version 1)
Quarter: 2017Q1

REPORT INFORMATION
  Report Type: Spontaneous
  Country: US (occurrence: US)
  Receive Date: 20170117
  Receipt Date: 20170117
  Transmission Date: 20170509
  Serious: Yes (Life-Threatening, Hospitalization)
  Sender: FDA-Public Use
  Company Number: None

PATIENT
  Age: 72 Year
  Sex: Male
  Weight: 70.2 kg

DRUGS (1)
  1. DABIGATRAN [Suspect]
     Active Substance: DABIGATRAN
     Indication: ATRIAL FIBRILLATION
     Route: 048
     Dates: start: 20131112, end: 20170105

REACTIONS (5)
  - Dizziness [None]
  - Palpitations [None]
  - Muscular weakness [None]
  - Gastric haemorrhage [None]
  - Occult blood positive [None]

NARRATIVE: CASE EVENT DATE: 20170105
